FAERS Safety Report 26012794 (Version 1)
Quarter: 2025Q4

REPORT INFORMATION
  Report Type: Report from Study
  Country: US (occurrence: US)
  Receive Date: 20251107
  Receipt Date: 20251107
  Transmission Date: 20260117
  Serious: No
  Sender: MALLINCKRODT
  Company Number: US-MALLINCKRODT-MNK202506507

PATIENT
  Sex: Male

DRUGS (2)
  1. CORTICOTROPIN [Suspect]
     Active Substance: CORTICOTROPIN
     Indication: Systemic lupus erythematosus
     Dosage: UNKNOWN
  2. WARFARIN [Concomitant]
     Active Substance: WARFARIN
     Dosage: UNKNOWN

REACTIONS (4)
  - Arthralgia [Unknown]
  - Contusion [Unknown]
  - Tremor [Unknown]
  - Injection site bruising [Unknown]
